FAERS Safety Report 8115415-8 (Version None)
Quarter: 2012Q1

REPORT INFORMATION
  Report Type: 
  Country: None (occurrence: None)
  Receive Date: 20120118
  Receipt Date: 20120109
  Transmission Date: 20120608
  Serious: Yes (Hospitalization)
  Sender: FDA-Public Use
  Company Number: 2012030784

PATIENT
  Age: 61 Year
  Sex: Female
  Weight: 43.0917 kg

DRUGS (18)
  1. NEURONTIN [Concomitant]
  2. CITALOPRAM HYDROBROMIDE [Concomitant]
  3. IPRATROPIUM BROMIDE [Concomitant]
  4. ASPIRIN [Concomitant]
  5. VITAMIN D [Concomitant]
  6. HEPARIN [Concomitant]
  7. REQUIP [Concomitant]
  8. SODIUM CHLORIDE [Concomitant]
  9. PERFOROMIST (FORMOTEROL) [Concomitant]
  10. PREDNISONE [Concomitant]
  11. ALBUTEROL [Concomitant]
  12. PRIMIDONE [Concomitant]
  13. OXYCONTIN [Concomitant]
  14. PRIVIGEN [Suspect]
     Indication: CHRONIC INFLAMMATORY DEMYELINATING POLYRADICULONEUROPATHY
     Dosage: (30 G, 30 GM DAILY FOR TWO DAYS EACH MONTH INTRAVENOUS(NOT OTHERWISE SPECIFIED)
     Route: 042
     Dates: start: 20111004
  15. PRIVIGEN [Suspect]
     Indication: CHRONIC INFLAMMATORY DEMYELINATING POLYRADICULONEUROPATHY
     Dosage: (30 G, 30 GM DAILY FOR TWO DAYS EACH MONTH INTRAVENOUS(NOT OTHERWISE SPECIFIED)
     Route: 042
     Dates: start: 20111226
  16. PROTONIX [Concomitant]
  17. BUDESONIDE [Concomitant]
  18. VITAMIN B COMPLEX WITH VITAMIN C [Concomitant]

REACTIONS (5)
  - PNEUMONIA [None]
  - VOMITING [None]
  - DIZZINESS [None]
  - NAUSEA [None]
  - URINARY TRACT INFECTION [None]
